FAERS Safety Report 5962034-5 (Version None)
Quarter: 2008Q4

REPORT INFORMATION
  Report Type: 
  Country: None (occurrence: None)
  Receive Date: 20081121
  Receipt Date: 20081113
  Transmission Date: 20090506
  Serious: Yes (Other)
  Sender: FDA-Public Use
  Company Number: DE-JNJFOC-20081001614

PATIENT
  Sex: Male
  Weight: 80 kg

DRUGS (3)
  1. INVEGA [Suspect]
     Indication: SCHIZOPHRENIA
     Route: 048
  2. ZOPLICON [Concomitant]
     Indication: SCHIZOPHRENIA
     Route: 048
  3. PROMETHAZINE [Concomitant]
     Indication: SCHIZOPHRENIA
     Route: 065

REACTIONS (1)
  - DEEP VEIN THROMBOSIS [None]
